FAERS Safety Report 16425312 (Version 1)
Quarter: 2019Q2

REPORT INFORMATION
  Report Type: Spontaneous
  Country: PT (occurrence: PT)
  Receive Date: 20190613
  Receipt Date: 20190613
  Transmission Date: 20190711
  Serious: Yes (Other)
  Sender: FDA-Public Use
  Company Number: PT-MYLANLABS-2019M1054146

PATIENT
  Age: 43 Year
  Sex: Female

DRUGS (11)
  1. DARUNAVIR [Concomitant]
     Active Substance: DARUNAVIR
     Indication: HIV INFECTION
     Dosage: UNK
  2. RITONAVIR. [Interacting]
     Active Substance: RITONAVIR
     Indication: HIV INFECTION
  3. LAMIVUDINE. [Concomitant]
     Active Substance: LAMIVUDINE
     Indication: HIV INFECTION
     Dosage: UNK
     Route: 065
  4. RITONAVIR. [Interacting]
     Active Substance: RITONAVIR
     Indication: HEPATITIS C
     Dosage: 100 MILLIGRAM, QD
     Route: 065
  5. RALTEGRAVIR. [Concomitant]
     Active Substance: RALTEGRAVIR
     Indication: HIV INFECTION
     Dosage: UNK
  6. RALTEGRAVIR. [Concomitant]
     Active Substance: RALTEGRAVIR
     Indication: HEPATITIS C
  7. PREDNISOLONE. [Concomitant]
     Active Substance: PREDNISOLONE
     Indication: PRODUCT USED FOR UNKNOWN INDICATION
     Dosage: UNK
     Route: 048
  8. BETAMETHASONE. [Suspect]
     Active Substance: BETAMETHASONE
     Indication: PRODUCT USED FOR UNKNOWN INDICATION
     Dosage: SPORADIC
     Route: 061
  9. ATAZANAVIR. [Concomitant]
     Active Substance: ATAZANAVIR
     Indication: HIV INFECTION
     Dosage: UNK
  10. ATAZANAVIR. [Concomitant]
     Active Substance: ATAZANAVIR
     Indication: HEPATITIS C
  11. BUDESONIDE. [Suspect]
     Active Substance: BUDESONIDE
     Indication: RHINITIS ALLERGIC
     Dosage: 200 UG, QD
     Route: 006

REACTIONS (7)
  - Skin fragility [Unknown]
  - Cushing^s syndrome [Recovering/Resolving]
  - Labelled drug-drug interaction medication error [Recovering/Resolving]
  - Skin striae [Unknown]
  - Muscular weakness [Unknown]
  - Cushingoid [Unknown]
  - Asthenia [Unknown]

NARRATIVE: CASE EVENT DATE: 2012
